FAERS Safety Report 6925377-4 (Version None)
Quarter: 2010Q3

REPORT INFORMATION
  Report Type: 
  Country: None (occurrence: None)
  Receive Date: 20100810
  Receipt Date: 20100730
  Transmission Date: 20110219
  Serious: Yes (Life-Threatening, Hospitalization)
  Sender: FDA-Public Use
  Company Number: IPC201008-000230

PATIENT
  Age: 75 Year
  Sex: Male

DRUGS (8)
  1. FUROSEMIDE [Suspect]
     Dosage: INGESTED 800 MG
  2. DIGOXIN [Suspect]
     Dosage: INGESTED 7.125MG
  3. SOTALOL HCL [Suspect]
     Dosage: INGESTED 7200MG
  4. ISOSORBIDE MONONITRATE [Suspect]
     Dosage: INGESTED 6000MG
  5. ACENOCOUMAROL [Suspect]
     Dosage: INGESTED 98MG
  6. ATORVASTATIN CALCIUM [Suspect]
     Dosage: INGESTED 1200MG
  7. PERINDOPRIL [Suspect]
     Dosage: INGESTED 200MG
  8. AMLODIPINE [Suspect]
     Dosage: INGESTED 300MG

REACTIONS (11)
  - CARDIOGENIC SHOCK [None]
  - CONTINUOUS HAEMODIAFILTRATION [None]
  - DISORIENTATION [None]
  - DRUG INTERACTION [None]
  - ELECTROCARDIOGRAM QRS COMPLEX PROLONGED [None]
  - ELECTROCARDIOGRAM QT PROLONGED [None]
  - HEART RATE DECREASED [None]
  - MULTIPLE DRUG OVERDOSE [None]
  - RENAL FAILURE [None]
  - THERAPEUTIC AGENT TOXICITY [None]
  - VENTRICULAR ARRHYTHMIA [None]
